FAERS Safety Report 12976706 (Version 1)
Quarter: 2016Q4

REPORT INFORMATION
  Report Type: Report from Study
  Country: CN (occurrence: CN)
  Receive Date: 20161128
  Receipt Date: 20161128
  Transmission Date: 20170207
  Serious: Yes (Other)
  Sender: FDA-Public Use
  Company Number: PHHY2016CN159552

PATIENT
  Age: 41 Year
  Sex: Male

DRUGS (50)
  1. PREDNISONE. [Suspect]
     Active Substance: PREDNISONE
     Dosage: 10 MG, QD
     Route: 065
     Dates: start: 20160929
  2. FELODIPINE. [Concomitant]
     Active Substance: FELODIPINE
     Indication: BLOOD PRESSURE INCREASED
     Dosage: 5 MG, BID
     Route: 048
     Dates: start: 20160429
  3. ALUMINUM PHOSPHATE [Concomitant]
     Active Substance: ALUMINUM PHOSPHATE
     Indication: PROPHYLAXIS AGAINST GASTROINTESTINAL ULCER
     Dosage: 20 G, QD
     Route: 048
     Dates: start: 20160509, end: 20160509
  4. SODIUM BICARBONATE. [Concomitant]
     Active Substance: SODIUM BICARBONATE
     Indication: ABDOMINAL DISCOMFORT
     Dosage: 2 DF, TID
     Route: 048
     Dates: start: 20160728, end: 20160826
  5. MYFORTIC [Suspect]
     Active Substance: MYCOPHENOLATE SODIUM
     Indication: RENAL TRANSPLANT
     Dosage: 1440 MG, QD
     Route: 065
     Dates: start: 20160429, end: 20160814
  6. CICLOSPORIN [Suspect]
     Active Substance: CYCLOSPORINE
     Indication: HYPERGLYCAEMIA
     Dosage: 200 MG, QD
     Route: 065
     Dates: start: 20160728
  7. ADENOSINE TRIPHOSPHATE [Concomitant]
     Active Substance: ADENOSINE TRIPHOSPHATE
     Indication: FLUID REPLACEMENT
     Dosage: 0.264 G, QD
     Route: 042
     Dates: start: 20160502, end: 20160504
  8. LEVOFLOXACIN. [Concomitant]
     Active Substance: LEVOFLOXACIN
     Indication: ANTIINFLAMMATORY THERAPY
     Dosage: 500 MG, QD
     Route: 042
     Dates: start: 20160526, end: 20160530
  9. NIFEDIPINE. [Concomitant]
     Active Substance: NIFEDIPINE
     Indication: BLOOD PRESSURE INCREASED
     Dosage: 10 MG, QD
     Route: 048
     Dates: start: 20160507, end: 20160507
  10. SODIUM BICARBONATE. [Concomitant]
     Active Substance: SODIUM BICARBONATE
     Indication: PROPHYLAXIS
     Dosage: 2 DF, BID
     Route: 048
     Dates: start: 20160630, end: 20161002
  11. SODIUM LACTATE. [Concomitant]
     Active Substance: SODIUM LACTATE
     Dosage: 500 ML, QD
     Route: 042
     Dates: start: 20160502, end: 20160502
  12. TORASEMIDE [Concomitant]
     Active Substance: TORSEMIDE
     Indication: POLYURIA
     Dosage: 20 MG, TID
     Route: 042
     Dates: start: 20160502, end: 20160502
  13. BASILIXIMAB [Suspect]
     Active Substance: BASILIXIMAB
     Indication: RENAL TRANSPLANT
     Dosage: 20 MG, QD
     Route: 065
     Dates: start: 20160428, end: 20160428
  14. TACROLIMUS. [Suspect]
     Active Substance: TACROLIMUS
     Dosage: 6 MG, QD
     Route: 065
     Dates: start: 20160503, end: 20160508
  15. PREDNISONE. [Suspect]
     Active Substance: PREDNISONE
     Indication: PRODUCT USED FOR UNKNOWN INDICATION
     Dosage: 20 MG, QD
     Route: 065
     Dates: start: 20160502, end: 20160928
  16. ASPIRIN (E.C.) [Concomitant]
     Active Substance: ASPIRIN
     Indication: HYPERTENSION
     Dosage: 100 MG, QD
     Dates: start: 20160429, end: 20160614
  17. INSULIN [Concomitant]
     Active Substance: INSULIN NOS
     Indication: FLUID REPLACEMENT
     Dosage: 20 IU, QD
     Route: 042
     Dates: start: 20160429, end: 20160430
  18. MYFORTIC [Suspect]
     Active Substance: MYCOPHENOLATE SODIUM
     Dosage: 1080 MG, QD
     Route: 065
     Dates: start: 20160815
  19. AMBROXOL HYDROCHLORIDE [Concomitant]
     Active Substance: AMBROXOL HYDROCHLORIDE
     Indication: PROPHYLAXIS
     Dosage: 30 MG, TID
     Route: 042
     Dates: start: 20160429, end: 20160502
  20. GLYCERIN. [Concomitant]
     Active Substance: GLYCERIN
     Indication: CONSTIPATION PROPHYLAXIS
     Dosage: 110 ML, QD
     Route: 065
     Dates: start: 20160502, end: 20160502
  21. ANISODAMINE [Concomitant]
     Active Substance: ANISODAMINE
     Indication: FLUID REPLACEMENT
     Dosage: 10 MG, QD
     Route: 030
     Dates: start: 20160509, end: 20160509
  22. NIFEDIPINE. [Concomitant]
     Active Substance: NIFEDIPINE
     Dosage: 10 MG, QD
     Route: 060
     Dates: start: 20160430, end: 20160430
  23. PHOSPHOCREATINE SODIUM [Concomitant]
     Indication: FLUID REPLACEMENT
     Dosage: 2 G, QD
     Route: 042
     Dates: start: 20160429, end: 20160502
  24. TELMISARTAN. [Concomitant]
     Active Substance: TELMISARTAN
     Indication: HYPERTENSION
     Dosage: 1 DF, BID
     Route: 048
     Dates: start: 20160728, end: 20160810
  25. TELMISARTAN. [Concomitant]
     Active Substance: TELMISARTAN
     Dosage: 80 MG, QD
     Route: 048
     Dates: start: 20160429, end: 20160430
  26. BASILIXIMAB [Suspect]
     Active Substance: BASILIXIMAB
     Dosage: 20 MG, QD
     Route: 065
     Dates: start: 20160502, end: 20160502
  27. DEXTRAN [Concomitant]
     Active Substance: DEXTRAN
     Indication: FLUID REPLACEMENT
     Dosage: 250 ML, QD
     Route: 042
     Dates: start: 20160429, end: 20160504
  28. LANSOPRAZOLE. [Concomitant]
     Active Substance: LANSOPRAZOLE
     Indication: PROPHYLAXIS AGAINST GASTROINTESTINAL ULCER
     Dosage: 30 MG, BID
     Route: 042
     Dates: start: 20160429, end: 20160502
  29. CALCIUM [Concomitant]
     Active Substance: CALCIUM
     Indication: FLUID REPLACEMENT
     Dosage: 1 G, QD
     Route: 042
     Dates: start: 20160429, end: 20160429
  30. CEFACLOR. [Concomitant]
     Active Substance: CEFACLOR
     Indication: ANTIINFLAMMATORY THERAPY
     Dosage: 1 DF, BID
     Route: 048
     Dates: start: 20160602, end: 20160609
  31. FUROSEMIDE. [Concomitant]
     Active Substance: FUROSEMIDE
     Indication: POLYURIA
     Dosage: 20 MG, QD
     Route: 042
     Dates: start: 20160429, end: 20160429
  32. MICAFUNGIN [Concomitant]
     Active Substance: MICAFUNGIN
     Indication: ANTIFUNGAL PROPHYLAXIS
     Dosage: 100 MG, QD
     Route: 042
     Dates: start: 20160429, end: 20160512
  33. POTASSIUM CHLORIDE. [Concomitant]
     Active Substance: POTASSIUM CHLORIDE
     Indication: FLUID REPLACEMENT
     Dosage: 2 G, QD
     Route: 042
     Dates: start: 20160429, end: 20160430
  34. SODIUM LACTATE. [Concomitant]
     Active Substance: SODIUM LACTATE
     Indication: FLUID RETENTION
     Dosage: 2000 ML, QD
     Route: 042
     Dates: start: 20160429, end: 20160429
  35. METHYLPREDNISOLONE. [Suspect]
     Active Substance: METHYLPREDNISOLONE
     Indication: PRODUCT USED FOR UNKNOWN INDICATION
     Dosage: 500 MG, QD
     Route: 065
     Dates: start: 20160428, end: 20160502
  36. ADENOSINE TRIPHOSPHATE [Concomitant]
     Active Substance: ADENOSINE TRIPHOSPHATE
     Dosage: 0.264 G, QD
     Route: 042
     Dates: start: 20160503, end: 20160503
  37. MOXIFLOXACIN. [Concomitant]
     Active Substance: MOXIFLOXACIN
     Dosage: 400 MG, QD
     Route: 042
     Dates: start: 20160512, end: 20160515
  38. PARACETAMOL [Concomitant]
     Active Substance: ACETAMINOPHEN
     Indication: PROPHYLAXIS
     Dosage: 1 DF (CAP), QD
     Route: 048
     Dates: start: 20160512, end: 20160512
  39. NIFEDIPINE. [Concomitant]
     Active Substance: NIFEDIPINE
     Dosage: 10 MG, QD
     Route: 048
     Dates: start: 20160502, end: 20160502
  40. TELMISARTAN. [Concomitant]
     Active Substance: TELMISARTAN
     Dosage: 80 MG, BID
     Route: 048
     Dates: start: 20160430
  41. TACROLIMUS. [Suspect]
     Active Substance: TACROLIMUS
     Dosage: 4 MG, QD
     Route: 065
     Dates: start: 20160509, end: 20160727
  42. ACARBOSE. [Concomitant]
     Active Substance: ACARBOSE
     Indication: BLOOD GLUCOSE INCREASED
     Dosage: 3 DF, TID
     Route: 048
     Dates: start: 20160707
  43. ASPIRIN (E.C.) [Concomitant]
     Active Substance: ASPIRIN
     Indication: BLOOD PRESSURE INCREASED
     Dosage: 1 DF (TAB), QD
     Route: 048
     Dates: start: 20160929
  44. SULFAMETHOXAZOLE [Concomitant]
     Active Substance: SULFAMETHOXAZOLE
     Indication: INFECTION PROPHYLAXIS
     Dosage: 1 DF, QD
     Route: 048
     Dates: start: 20160630, end: 20160908
  45. ALPROSTADIL. [Concomitant]
     Active Substance: ALPROSTADIL
     Indication: CARDIOVASCULAR INSUFFICIENCY
     Dosage: 10 UG, QD
     Route: 042
     Dates: start: 20160503, end: 20160503
  46. ALPROSTADIL. [Concomitant]
     Active Substance: ALPROSTADIL
     Indication: ANTICOAGULANT THERAPY
     Dosage: 10 UG, QD
     Route: 042
     Dates: start: 20160429, end: 20160504
  47. LACTULOSE. [Concomitant]
     Active Substance: LACTULOSE
     Indication: FLUID REPLACEMENT
     Dosage: 10 ML, TID
     Route: 048
     Dates: start: 20160429, end: 20160502
  48. MOXIFLOXACIN. [Concomitant]
     Active Substance: MOXIFLOXACIN
     Indication: INFECTION PROPHYLAXIS
     Dosage: 400 MG, QD
     Route: 042
     Dates: start: 20160429, end: 20160502
  49. PANTOPRAZOLE [Concomitant]
     Active Substance: PANTOPRAZOLE SODIUM
     Indication: PROPHYLAXIS AGAINST GASTROINTESTINAL ULCER
     Dosage: 40 MG, QN
     Route: 048
     Dates: start: 20160502
  50. TACROLIMUS. [Suspect]
     Active Substance: TACROLIMUS
     Indication: PRODUCT USED FOR UNKNOWN INDICATION
     Dosage: 4 MG, QD
     Route: 065
     Dates: start: 20160429, end: 20160503

REACTIONS (5)
  - Alanine aminotransferase increased [Unknown]
  - Blood albumin decreased [Unknown]
  - Eye disorder [Recovering/Resolving]
  - Lymphocyte count decreased [Unknown]
  - Bilirubin conjugated increased [Unknown]

NARRATIVE: CASE EVENT DATE: 20160430
